FAERS Safety Report 10345087 (Version 1)
Quarter: 2014Q3

REPORT INFORMATION
  Report Type: Spontaneous
  Country: US (occurrence: None)
  Receive Date: 20140725
  Receipt Date: 20140725
  Transmission Date: 20150326
  Serious: Yes (Hospitalization)
  Sender: FDA-Public Use
  Company Number: None

PATIENT
  Age: 53 Year
  Sex: Male
  Weight: 59 kg

DRUGS (1)
  1. ICY HOT [Suspect]
     Active Substance: MENTHOL\METHYL SALICYLATE
     Indication: PAIN
     Dosage: ONE TIME

REACTIONS (12)
  - Pyrexia [None]
  - Infection [None]
  - Hypokalaemia [None]
  - Chills [None]
  - Burns fourth degree [None]
  - Application site burn [None]
  - Blister [None]
  - Eschar [None]
  - Sepsis [None]
  - Skin graft [None]
  - Skin exfoliation [None]
  - Tendon disorder [None]

NARRATIVE: CASE EVENT DATE: 20140713
